FAERS Safety Report 16446129 (Version 1)
Quarter: 2019Q2

REPORT INFORMATION
  Report Type: Spontaneous
  Country: US (occurrence: US)
  Receive Date: 20190618
  Receipt Date: 20190618
  Transmission Date: 20190711
  Serious: Yes (Other)
  Sender: FDA-Public Use
  Company Number: US-PERRIGOEU-19US007052

PATIENT
  Age: 69 Year
  Sex: Female
  Weight: 52.15 kg

DRUGS (12)
  1. GATIFLOXACIN. [Suspect]
     Active Substance: GATIFLOXACIN
     Dosage: UNKNOWN, QID
     Route: 047
     Dates: start: 20190605
  2. DICLOFENAC [Suspect]
     Active Substance: DICLOFENAC
     Indication: PREOPERATIVE CARE
     Dosage: UNKNOWN, QID
     Route: 047
     Dates: start: 20190601, end: 20190603
  3. CYCLOPENTOLATE. [Suspect]
     Active Substance: CYCLOPENTOLATE
     Indication: PREOPERATIVE CARE
     Dosage: UNKNOWN, EVERY 30 MINUTES, 3 TIMES PRIOR TO SURGERY
     Route: 047
     Dates: start: 20190604, end: 20190604
  4. GATIFLOXACIN. [Suspect]
     Active Substance: GATIFLOXACIN
     Indication: PREOPERATIVE CARE
     Dosage: UNKNOWN, QID
     Route: 047
     Dates: start: 20190601, end: 20190603
  5. PREDNISONE ACETATE [Suspect]
     Active Substance: PREDNISONE ACETATE
     Dosage: UNKNOWN, QID
     Route: 047
     Dates: start: 20190605
  6. CETIRIZINE HYDROCHLORIDE. [Suspect]
     Active Substance: CETIRIZINE HYDROCHLORIDE
     Indication: SEASONAL ALLERGY
     Dosage: 10 MG, QD
     Route: 048
     Dates: start: 20190602, end: 20190604
  7. PREDNISONE ACETATE [Suspect]
     Active Substance: PREDNISONE ACETATE
     Indication: PREOPERATIVE CARE
     Dosage: UNKNOWN, QID
     Route: 047
     Dates: start: 20190601, end: 20190603
  8. PHENYLEPHRINE [Suspect]
     Active Substance: PHENYLEPHRINE\PHENYLEPHRINE HYDROCHLORIDE
     Indication: PREOPERATIVE CARE
     Dosage: 1 DROP, THREE TIMES, 1 HOUR BEFORE SURGERY
     Route: 047
     Dates: start: 20190604, end: 20190604
  9. DICLOFENAC [Suspect]
     Active Substance: DICLOFENAC
     Dosage: UNKNOWN, QID
     Route: 047
     Dates: start: 20190605
  10. CETIRIZINE HYDROCHLORIDE. [Suspect]
     Active Substance: CETIRIZINE HYDROCHLORIDE
     Indication: SNEEZING
  11. CETIRIZINE HYDROCHLORIDE. [Suspect]
     Active Substance: CETIRIZINE HYDROCHLORIDE
     Indication: NASAL CONGESTION
  12. OTHER OPHTHALMOLOGICALS [Suspect]
     Active Substance: UNSPECIFIED INGREDIENT
     Indication: PUPIL DILATION PROCEDURE
     Dosage: UNKNOWN, UNKNOWN
     Route: 047
     Dates: start: 20190605, end: 20190605

REACTIONS (9)
  - Dehydration [Recovered/Resolved]
  - Blood pressure decreased [Recovered/Resolved]
  - Diarrhoea [Recovered/Resolved]
  - Syncope [Recovered/Resolved]
  - Seizure [Recovered/Resolved]
  - Heart rate decreased [Recovered/Resolved]
  - Product administered to patient of inappropriate age [Recovered/Resolved]
  - Hyperhidrosis [Recovered/Resolved]
  - Drug ineffective for unapproved indication [Unknown]

NARRATIVE: CASE EVENT DATE: 20190602
